FAERS Safety Report 9878553 (Version 1)
Quarter: 2014Q1

REPORT INFORMATION
  Report Type: Spontaneous
  Country: US (occurrence: US)
  Receive Date: 20140206
  Receipt Date: 20140206
  Transmission Date: 20141002
  Serious: No
  Sender: FDA-Public Use
  Company Number: US-ALLERGAN-1312299US

PATIENT
  Age: 50 Year
  Sex: Female

DRUGS (4)
  1. BOTOX COSMETIC [Suspect]
     Indication: SKIN WRINKLING
     Dosage: UNK, SINGLE
     Route: 030
     Dates: start: 20130812, end: 20130812
  2. ARNICA CREAM NOS [Concomitant]
     Indication: PROPHYLAXIS
  3. FLONASE [Concomitant]
     Indication: HYPERSENSITIVITY
  4. LORATADINE [Concomitant]
     Indication: HYPERSENSITIVITY

REACTIONS (3)
  - Injection site discomfort [Unknown]
  - Injection site swelling [Not Recovered/Not Resolved]
  - Periorbital oedema [Unknown]
